FAERS Safety Report 5173255-6 (Version None)
Quarter: 2006Q4

REPORT INFORMATION
  Report Type: 
  Country: None (occurrence: None)
  Receive Date: 20061214
  Receipt Date: 20051213
  Transmission Date: 20070319
  Serious: Yes (Other)
  Sender: FDA-Public Use
  Company Number: PHFR2005GB04063

PATIENT
  Age: 20 Year
  Sex: Male
  Weight: 152 kg

DRUGS (1)
  1. CLOZARIL [Suspect]
     Indication: SCHIZOPHRENIA
     Dosage: 400MG DAILY
     Route: 048
     Dates: start: 20051007

REACTIONS (3)
  - BLOOD PRESSURE INCREASED [None]
  - OBESITY [None]
  - SKIN DISCOLOURATION [None]
